FAERS Safety Report 9719571 (Version 4)
Quarter: 2013Q4

REPORT INFORMATION
  Report Type: Spontaneous
  Country: US (occurrence: US)
  Receive Date: 20131128
  Receipt Date: 20131219
  Transmission Date: 20140711
  Serious: Yes (Hospitalization, Other)
  Sender: FDA-Public Use
  Company Number: US-BIOGENIDEC-2013BI105127

PATIENT
  Age: 46 Year
  Sex: Female
  Weight: 44 kg

DRUGS (8)
  1. AVONEX [Suspect]
     Indication: RELAPSING-REMITTING MULTIPLE SCLEROSIS
     Route: 030
     Dates: start: 20130730
  2. COPAXONE [Concomitant]
     Route: 058
  3. IBUPROFEN [Concomitant]
     Route: 048
  4. ALBUTEROL [Concomitant]
     Route: 055
     Dates: start: 20130815
  5. CHOLECALCIFEROL [Concomitant]
     Route: 048
     Dates: start: 20130808
  6. VENTOLIN HFA [Concomitant]
     Route: 055
  7. ALEVE [Concomitant]
     Route: 048
  8. KAOPECTATE [Concomitant]
     Route: 048

REACTIONS (15)
  - Multiple sclerosis relapse [Recovered/Resolved with Sequelae]
  - Convulsion [Unknown]
  - Vomiting [Recovered/Resolved]
  - Headache [Not Recovered/Not Resolved]
  - Bladder dysfunction [Unknown]
  - Constipation [Unknown]
  - Blood sodium decreased [Unknown]
  - Blood creatinine decreased [Unknown]
  - Red blood cell count decreased [Unknown]
  - Haemoglobin decreased [Unknown]
  - Haematocrit decreased [Unknown]
  - Chest pain [Not Recovered/Not Resolved]
  - Nausea [Not Recovered/Not Resolved]
  - Multiple sclerosis [Not Recovered/Not Resolved]
  - Drug ineffective [Not Recovered/Not Resolved]
